FAERS Safety Report 24853435 (Version 1)
Quarter: 2025Q1

REPORT INFORMATION
  Report Type: Spontaneous
  Country: FR (occurrence: FR)
  Receive Date: 20250117
  Receipt Date: 20250117
  Transmission Date: 20250409
  Serious: Yes (Hospitalization, Other)
  Sender: SANDOZ
  Company Number: None

PATIENT
  Age: 15 Year
  Sex: Male
  Weight: 48 kg

DRUGS (6)
  1. BROMAZEPAM [Suspect]
     Active Substance: BROMAZEPAM
     Indication: Product used for unknown indication
     Route: 065
  2. CANNABIS SATIVA SUBSP. INDICA TOP [Suspect]
     Active Substance: CANNABIS SATIVA SUBSP. INDICA TOP
     Indication: Product used for unknown indication
     Dosage: 2 DF, QD; 2 JOINTS/DAY
     Route: 065
  3. CODEINE [Suspect]
     Active Substance: CODEINE
     Indication: Product used for unknown indication
     Route: 065
  4. ZOLPIDEM [Suspect]
     Active Substance: ZOLPIDEM TARTRATE
     Indication: Product used for unknown indication
     Route: 065
  5. ZOPICLONE [Suspect]
     Active Substance: ZOPICLONE
     Indication: Product used for unknown indication
     Route: 065
  6. FLUOXETINE [Concomitant]
     Active Substance: FLUOXETINE HYDROCHLORIDE
     Indication: Product used for unknown indication
     Route: 065

REACTIONS (10)
  - Psychomotor hyperactivity [Unknown]
  - Negative thoughts [Unknown]
  - Aggression [Recovered/Resolved]
  - Anxiety [Recovered/Resolved]
  - Insomnia [Unknown]
  - Agitation [Recovered/Resolved]
  - Mydriasis [Recovered/Resolved]
  - Substance use disorder [Unknown]
  - Drug use disorder [Unknown]
  - Agitation [Unknown]

NARRATIVE: CASE EVENT DATE: 20240701
